FAERS Safety Report 16265114 (Version 1)
Quarter: 2019Q2

REPORT INFORMATION
  Report Type: Report from Study
  Country: US (occurrence: US)
  Receive Date: 20190502
  Receipt Date: 20190502
  Transmission Date: 20190711
  Serious: No
  Sender: FDA-Public Use
  Company Number: US-RETROPHIN, INC.-2018RTN00039

PATIENT
  Sex: Female
  Weight: 7.26 kg

DRUGS (2)
  1. UNSPECIFIED SEIZURE MEDICATION [Concomitant]
  2. CHOLBAM [Suspect]
     Active Substance: CHOLIC ACID
     Indication: LIPIDOSIS
     Dosage: 50 MG, 2X/DAY
     Route: 048
     Dates: start: 20180730

REACTIONS (1)
  - Nervousness [Recovered/Resolved]

NARRATIVE: CASE EVENT DATE: 2018
